FAERS Safety Report 14650178 (Version 3)
Quarter: 2018Q2

REPORT INFORMATION
  Report Type: Report from Study
  Country: GB (occurrence: GB)
  Receive Date: 20180316
  Receipt Date: 20180406
  Transmission Date: 20180711
  Serious: Yes (Hospitalization, Other)
  Sender: FDA-Public Use
  Company Number: GB-JNJFOC-20180320700

PATIENT
  Sex: Female

DRUGS (1)
  1. STELARA [Suspect]
     Active Substance: USTEKINUMAB
     Indication: PSORIATIC ARTHROPATHY
     Dosage: 0.5 ML
     Route: 058
     Dates: start: 20170210

REACTIONS (4)
  - Pharyngitis [Not Recovered/Not Resolved]
  - Psoriasis [Unknown]
  - Lower respiratory tract infection [Recovering/Resolving]
  - Rash erythematous [Not Recovered/Not Resolved]
